FAERS Safety Report 9612571 (Version 2)
Quarter: 2014Q1

REPORT INFORMATION
  Report Type: Report from Study
  Country: MY (occurrence: MY)
  Receive Date: 20131010
  Receipt Date: 20140220
  Transmission Date: 20141002
  Serious: Yes (Hospitalization)
  Sender: FDA-Public Use
  Company Number: PHHY2013MY113208

PATIENT
  Age: 5 Year
  Sex: Male
  Weight: 16.9 kg

DRUGS (2)
  1. ICL670A [Suspect]
     Indication: THALASSAEMIA BETA
     Dosage: 750 MG, DAILY
     Route: 048
     Dates: start: 20091222, end: 20130823
  2. CEFUROXIME [Concomitant]
     Indication: PYREXIA
     Dosage: 840 MG, UNK
     Dates: start: 20130823, end: 20130828

REACTIONS (2)
  - Gastroenteritis [Recovered/Resolved]
  - Haematuria [Recovered/Resolved]
